FAERS Safety Report 7996649-X (Version None)
Quarter: 2011Q4

REPORT INFORMATION
  Report Type: 
  Country: None (occurrence: None)
  Receive Date: 20111221
  Receipt Date: 20111208
  Transmission Date: 20120403
  Serious: Yes (Hospitalization)
  Sender: FDA-Public Use
  Company Number: US-ELI_LILLY_AND_COMPANY-US201008004930

PATIENT
  Sex: Female

DRUGS (8)
  1. LODOSYN [Concomitant]
  2. FORTEO [Suspect]
     Dosage: 20 UG, QD
     Route: 058
  3. MIRTAZAPINE [Concomitant]
  4. VITAMIN D [Concomitant]
  5. FORTEO [Suspect]
     Indication: OSTEOPOROSIS
     Dosage: 20 UG, QD
     Route: 058
  6. CARBIDOPA [Concomitant]
  7. SYNTHROID [Concomitant]
  8. TRAMADOL HCL [Concomitant]

REACTIONS (2)
  - INJECTION SITE HAEMATOMA [None]
  - COMPRESSION FRACTURE [None]
